FAERS Safety Report 25802083 (Version 1)
Quarter: 2025Q3

REPORT INFORMATION
  Report Type: Spontaneous
  Country: US (occurrence: US)
  Receive Date: 20250915
  Receipt Date: 20250915
  Transmission Date: 20251020
  Serious: No
  Sender: GLENMARK
  Company Number: US-GLENMARK PHARMACEUTICALS-2024GMK095694

PATIENT

DRUGS (1)
  1. CARVEDILOL [Suspect]
     Active Substance: CARVEDILOL
     Indication: Hypertension
     Dosage: 1 DOSAGE FORM, BID (ONE TABLET IN THE MORNING AND ONE IN THE AFTERNOON)
     Route: 065

REACTIONS (6)
  - Eye swelling [Unknown]
  - Ocular hyperaemia [Unknown]
  - Wheezing [Unknown]
  - Bedridden [Unknown]
  - Headache [Unknown]
  - Migraine [Unknown]
